FAERS Safety Report 6288675-6 (Version None)
Quarter: 2009Q3

REPORT INFORMATION
  Report Type: 
  Country: None (occurrence: None)
  Receive Date: 20090727
  Receipt Date: 20090703
  Transmission Date: 20100115
  Serious: Yes (Hospitalization, Other)
  Sender: FDA-Public Use
  Company Number: JPI-P-007857

PATIENT
  Age: 32 Year

DRUGS (2)
  1. LUVOX CR [Suspect]
     Indication: SOCIAL PHOBIA
     Dosage: 75 MG, 1 D , ORAL
     Route: 048
     Dates: start: 20070912, end: 20080315
  2. BROMAZEPAM(CAPSULES) [Concomitant]

REACTIONS (1)
  - RHABDOMYOLYSIS [None]
